FAERS Safety Report 4475533-2 (Version None)
Quarter: 2004Q4

REPORT INFORMATION
  Report Type: 
  Country: None (occurrence: None)
  Receive Date: 20041015
  Receipt Date: 20041004
  Transmission Date: 20050328
  Serious: Yes (Hospitalization, Other)
  Sender: FDA-Public Use
  Company Number: US-MERCK-0410USA00430

PATIENT
  Age: 55 Year
  Sex: Male

DRUGS (1)
  1. VIOXX [Suspect]
     Indication: BACK PAIN
     Route: 048
     Dates: start: 19990101, end: 20040901

REACTIONS (5)
  - CARDIAC DISORDER [None]
  - DIZZINESS [None]
  - HYPERTENSION [None]
  - PROSTATECTOMY [None]
  - PROSTATIC DISORDER [None]
